FAERS Safety Report 4597277-9 (Version None)
Quarter: 2005Q1

REPORT INFORMATION
  Report Type: 
  Country: None (occurrence: None)
  Receive Date: 20050225
  Receipt Date: 20050225
  Transmission Date: 20050727
  Serious: Yes (Hospitalization)
  Sender: FDA-Public Use
  Company Number: None

PATIENT
  Sex: Female
  Weight: 49.8957 kg

DRUGS (5)
  1. ULTRAM [Suspect]
     Indication: ARTHRITIS
     Dates: start: 20050210, end: 20050212
  2. ULTRAM [Suspect]
     Indication: BACK PAIN
     Dates: start: 20050210, end: 20050212
  3. LEVOXYL [Concomitant]
  4. DETROL LA [Concomitant]
  5. OCCUFLOX [Concomitant]

REACTIONS (7)
  - AGITATION [None]
  - DISORIENTATION [None]
  - EMOTIONAL DISTRESS [None]
  - FEAR [None]
  - HALLUCINATION, AUDITORY [None]
  - HALLUCINATION, VISUAL [None]
  - PARANOIA [None]
